FAERS Safety Report 8994660 (Version 1)
Quarter: 2012Q4

REPORT INFORMATION
  Report Type: Spontaneous
  Country: US (occurrence: None)
  Receive Date: 20121228
  Receipt Date: 20121228
  Transmission Date: 20130627
  Serious: Yes (Other)
  Sender: FDA-Public Use
  Company Number: None

PATIENT
  Age: 67 Year
  Sex: Male
  Weight: 66.68 kg

DRUGS (1)
  1. CRESTOR [Suspect]
     Indication: DYSLIPIDEMIA
     Route: 048
     Dates: start: 20120101, end: 20121201

REACTIONS (1)
  - Deafness transitory [None]
